FAERS Safety Report 16326551 (Version 3)
Quarter: 2019Q3

REPORT INFORMATION
  Report Type: Spontaneous
  Country: FR (occurrence: FR)
  Receive Date: 20190517
  Receipt Date: 20190813
  Transmission Date: 20191004
  Serious: Yes (Hospitalization, Other)
  Sender: FDA-Public Use
  Company Number: FR-PFIZER INC-2019208100

PATIENT
  Age: 69 Year
  Sex: Female
  Weight: 58 kg

DRUGS (13)
  1. CIFLOX [CIPROFLOXACIN HYDROCHLORIDE] [Suspect]
     Active Substance: CIPROFLOXACIN HYDROCHLORIDE
     Indication: LUNG INFECTION
     Dosage: 1 DF, QD
     Route: 048
     Dates: start: 20181104, end: 20181105
  2. AMOXICILLINE [AMOXICILLIN] [Concomitant]
     Active Substance: AMOXICILLIN
     Dosage: 6 G, QD
     Route: 048
  3. FASLODEX [Concomitant]
     Active Substance: FULVESTRANT
     Dosage: 1 DF, QM
     Route: 030
     Dates: start: 20180530, end: 20181105
  4. RAMIPRIL. [Suspect]
     Active Substance: RAMIPRIL
     Indication: HYPERTENSION
     Dosage: 5 MG, QD
     Route: 048
  5. RAMIPRIL. [Suspect]
     Active Substance: RAMIPRIL
     Dosage: UNK
     Route: 048
  6. XYZALL [Concomitant]
     Active Substance: LEVOCETIRIZINE DIHYDROCHLORIDE
     Dosage: 1 DF, QD
     Route: 048
  7. DUROGESIC [Concomitant]
     Active Substance: FENTANYL
     Dosage: 1 DF, QOD
     Route: 062
  8. CORTANCYL [Concomitant]
     Active Substance: PREDNISONE
     Indication: INFECTION
     Dosage: UNK
     Route: 048
     Dates: start: 20181104, end: 20181107
  9. METFORMINE [METFORMIN] [Concomitant]
     Active Substance: METFORMIN HYDROCHLORIDE
     Dosage: UNK
     Route: 048
  10. XGEVA [Concomitant]
     Active Substance: DENOSUMAB
     Dosage: 1 DF, QM
     Route: 030
  11. ESIDREX [Suspect]
     Active Substance: HYDROCHLOROTHIAZIDE
     Indication: HYPERTENSION
     Dosage: UNK
     Route: 048
  12. IBRANCE [Concomitant]
     Active Substance: PALBOCICLIB
     Dosage: 1 DF, QM
     Route: 030
     Dates: start: 20180530, end: 20181105
  13. CALCIDOSE VITAMINE D [Concomitant]
     Active Substance: CALCIUM\CHOLECALCIFEROL
     Dosage: 1 DF, 1X/DAY
     Route: 048

REACTIONS (1)
  - Prerenal failure [Recovered/Resolved]

NARRATIVE: CASE EVENT DATE: 20181106
